FAERS Safety Report 22908739 (Version 11)
Quarter: 2025Q2

REPORT INFORMATION
  Report Type: Spontaneous
  Country: US (occurrence: US)
  Receive Date: 20230905
  Receipt Date: 20250505
  Transmission Date: 20250716
  Serious: Yes (Disabling, Other)
  Sender: AMGEN
  Company Number: US-HORIZON THERAPEUTICS-HZN-2023-000729

PATIENT
  Age: 66 Year
  Sex: Male

DRUGS (28)
  1. TEPEZZA [Suspect]
     Active Substance: TEPROTUMUMAB-TRBW
     Indication: Toxic goitre
     Route: 042
     Dates: start: 20210420, end: 20210420
  2. TEPEZZA [Suspect]
     Active Substance: TEPROTUMUMAB-TRBW
     Indication: Endocrine ophthalmopathy
     Dosage: 1880 MILLIGRAM, Q3WK (SECOND INFUSION)
     Route: 042
     Dates: start: 20210511, end: 20210511
  3. TEPEZZA [Suspect]
     Active Substance: TEPROTUMUMAB-TRBW
     Dosage: 1880 MILLIGRAM, Q3WK  (THIRD INFUSION)
     Route: 042
     Dates: start: 20210602, end: 20210602
  4. TEPEZZA [Suspect]
     Active Substance: TEPROTUMUMAB-TRBW
     Dosage: 1880 MILLIGRAM, Q3WK (FOURTH INFUSION)
     Route: 042
     Dates: start: 20210622, end: 20210622
  5. TEPEZZA [Suspect]
     Active Substance: TEPROTUMUMAB-TRBW
     Dosage: 1909 MILLIGRAM, Q3WK (FIFTH INFUSION)
     Route: 042
     Dates: start: 20210714, end: 20210714
  6. TEPEZZA [Suspect]
     Active Substance: TEPROTUMUMAB-TRBW
     Dosage: 1909 MILLIGRAM, Q3WK (SIXTH INFUSION)
     Route: 042
     Dates: start: 20210804, end: 20210804
  7. TEPEZZA [Suspect]
     Active Substance: TEPROTUMUMAB-TRBW
     Dosage: 1899 MILLIGRAM, Q3WK (SEVENTH INFUSION)
     Route: 042
     Dates: start: 20210828, end: 20210828
  8. TEPEZZA [Suspect]
     Active Substance: TEPROTUMUMAB-TRBW
     Dosage: 1899 MILLIGRAM, Q3WK (EIGHTH INFUSION, FIRST ROUND)
     Route: 042
     Dates: start: 20210915, end: 20210915
  9. TEPEZZA [Suspect]
     Active Substance: TEPROTUMUMAB-TRBW
     Route: 042
     Dates: start: 202303
  10. TEPEZZA [Suspect]
     Active Substance: TEPROTUMUMAB-TRBW
     Route: 042
     Dates: start: 2023
  11. TEPEZZA [Suspect]
     Active Substance: TEPROTUMUMAB-TRBW
     Route: 042
     Dates: start: 202308
  12. PREDNISONE [Suspect]
     Active Substance: PREDNISONE
     Indication: Graves^ disease
     Route: 065
  13. PREDNISONE [Suspect]
     Active Substance: PREDNISONE
     Indication: Vision blurred
  14. PREDNISONE [Suspect]
     Active Substance: PREDNISONE
     Indication: Eye inflammation
  15. ZYRTEC [Concomitant]
     Active Substance: CETIRIZINE HYDROCHLORIDE
     Route: 048
  16. PROBIOTICS NOS [Concomitant]
     Active Substance: PROBIOTICS NOS
     Route: 048
  17. MELATONIN [Concomitant]
     Active Substance: MELATONIN
     Indication: Insomnia
     Route: 048
  18. DEXTRAN 70\HYPROMELLOSES [Concomitant]
     Active Substance: DEXTRAN 70\HYPROMELLOSES
     Indication: Dry eye
     Dosage: QD (0.1- 0.3 PERCENT DROP OPHTHALMIC SOLUTION)
     Route: 065
  19. VOLTAREN [Concomitant]
     Active Substance: DICLOFENAC SODIUM
     Indication: Arthralgia
     Route: 065
  20. MOTRIN [Concomitant]
     Active Substance: IBUPROFEN
     Indication: Pain
     Route: 048
  21. SYNTHROID [Concomitant]
     Active Substance: LEVOTHYROXINE SODIUM
     Route: 048
     Dates: start: 20230403, end: 20231003
  22. DOXYCYCLINE HYCLATE [Concomitant]
     Active Substance: DOXYCYCLINE HYCLATE
     Route: 048
  23. ACETAMINOPHEN\HYDROCODONE [Concomitant]
     Active Substance: ACETAMINOPHEN\HYDROCODONE
     Route: 048
  24. MOMETASONE [Concomitant]
     Active Substance: MOMETASONE
     Route: 061
  25. FLUTICASONE PROPIONATE [Concomitant]
     Active Substance: FLUTICASONE PROPIONATE
     Route: 045
  26. TETRAHYDROZOLINE HYDROCHLORIDE [Concomitant]
     Active Substance: TETRAHYDROZOLINE HYDROCHLORIDE
     Route: 065
  27. SOLU-MEDROL [Concomitant]
     Active Substance: METHYLPREDNISOLONE SODIUM SUCCINATE
     Route: 065
  28. SOLU-MEDROL [Concomitant]
     Active Substance: METHYLPREDNISOLONE SODIUM SUCCINATE
     Route: 065

REACTIONS (38)
  - Deafness neurosensory [Not Recovered/Not Resolved]
  - Disability [Not Recovered/Not Resolved]
  - Physical disability [Not Recovered/Not Resolved]
  - Endocrine ophthalmopathy [Unknown]
  - Nasal septum deviation [Unknown]
  - Nasal turbinate hypertrophy [Unknown]
  - Acute sinusitis [Unknown]
  - Anxiety [Not Recovered/Not Resolved]
  - Anti-thyroid antibody increased [Unknown]
  - Balance disorder [Unknown]
  - Chronic sinusitis [Unknown]
  - Concomitant disease aggravated [Not Recovered/Not Resolved]
  - Diplopia [Recovering/Resolving]
  - Dizziness [Unknown]
  - Ear discomfort [Unknown]
  - Ear dryness [Unknown]
  - Economic problem [Not Recovered/Not Resolved]
  - Eczema [Unknown]
  - Emotional distress [Not Recovered/Not Resolved]
  - Facial pain [Unknown]
  - Headache [Unknown]
  - Hypoacusis [Unknown]
  - Impaired quality of life [Not Recovered/Not Resolved]
  - Inappropriate schedule of product administration [Unknown]
  - Injury [Not Recovered/Not Resolved]
  - Nasal obstruction [Unknown]
  - Nasal vestibulitis [Unknown]
  - Off label use [Unknown]
  - Oropharyngeal pain [Unknown]
  - Otitis externa [Unknown]
  - Muscle spasms [Recovering/Resolving]
  - Pain [Not Recovered/Not Resolved]
  - Paranasal sinus discomfort [Unknown]
  - Product quality issue [Unknown]
  - Rhinitis [Unknown]
  - Therapeutic product effect decreased [Unknown]
  - Therapeutic product effect incomplete [Not Recovered/Not Resolved]
  - Tinnitus [Not Recovered/Not Resolved]

NARRATIVE: CASE EVENT DATE: 20221101
